FAERS Safety Report 23760084 (Version 1)
Quarter: 2024Q2

REPORT INFORMATION
  Report Type: Spontaneous
  Country: US (occurrence: US)
  Receive Date: 20240419
  Receipt Date: 20240419
  Transmission Date: 20240716
  Serious: Yes (Hospitalization)
  Sender: FDA-Public Use
  Company Number: US-NOVOPROD-1203771

PATIENT
  Age: 76 Year
  Sex: Female

DRUGS (1)
  1. WEGOVY [Suspect]
     Active Substance: SEMAGLUTIDE
     Indication: Product used for unknown indication
     Dosage: 0.5 MG, QW
     Route: 058

REACTIONS (9)
  - Lupus-like syndrome [Unknown]
  - Weight decreased [Unknown]
  - Drug intolerance [Unknown]
  - Sleep disorder [Unknown]
  - Hepatic cirrhosis [Unknown]
  - Hepatosplenomegaly [Unknown]
  - Autoimmune hepatitis [Unknown]
  - Vomiting [Unknown]
  - Nausea [Unknown]
